FAERS Safety Report 13404698 (Version 2)
Quarter: 2017Q2

REPORT INFORMATION
  Report Type: Spontaneous
  Country: US (occurrence: US)
  Receive Date: 20170405
  Receipt Date: 20170503
  Transmission Date: 20170830
  Serious: Yes (Hospitalization)
  Sender: FDA-Public Use
  Company Number: US-BAXTER-2017BAX013918

PATIENT
  Age: 54 Year
  Sex: Female

DRUGS (15)
  1. MOTRIN [Suspect]
     Active Substance: IBUPROFEN
     Indication: PRODUCT USED FOR UNKNOWN INDICATION
     Dosage: PRN
     Route: 048
  2. 0.9% SODIUM CHLORIDE INJECTION [Suspect]
     Active Substance: SODIUM CHLORIDE
     Indication: MEDICATION DILUTION
     Dosage: IV PIGGYBACK, DILUTED FOR ZOSYN, RATE 12.5ML/HR
     Route: 042
     Dates: start: 20161031
  3. 0.9% SODIUM CHLORIDE INJECTION [Suspect]
     Active Substance: SODIUM CHLORIDE
     Indication: PRODUCT USED FOR UNKNOWN INDICATION
     Dosage: IV CONTINUOUS AT A RATE OF 125 ML/HR
     Route: 042
     Dates: start: 20161031
  4. ZOFRAN [Suspect]
     Active Substance: ONDANSETRON HYDROCHLORIDE
     Indication: PRODUCT USED FOR UNKNOWN INDICATION
     Dosage: PRN
     Route: 042
  5. LOVENOX [Suspect]
     Active Substance: ENOXAPARIN SODIUM
     Indication: PRODUCT USED FOR UNKNOWN INDICATION
     Dosage: SYRINGE
     Route: 058
     Dates: start: 20161031
  6. ZOSYN [Suspect]
     Active Substance: PIPERACILLIN SODIUM\TAZOBACTAM SODIUM
     Indication: PRODUCT USED FOR UNKNOWN INDICATION
     Dosage: IV PIGGYBACK, DILUTED IN 0.9% NACL, RATE 12.5ML/HR
     Route: 042
     Dates: start: 20161031
  7. ZOLOFT [Suspect]
     Active Substance: SERTRALINE HYDROCHLORIDE
     Indication: PRODUCT USED FOR UNKNOWN INDICATION
     Route: 048
     Dates: start: 20161031
  8. VANCOMYCIN INJECTION, USP [Suspect]
     Active Substance: VANCOMYCIN
     Indication: ERYTHEMA
     Dosage: IVPB, AT A RATE OF 125 ML/HR, WITH NACL 0.9% AS DILUENT
     Route: 042
     Dates: start: 20161031
  9. TYLENOL [Suspect]
     Active Substance: ACETAMINOPHEN
     Indication: PRODUCT USED FOR UNKNOWN INDICATION
     Dosage: AS REQUIRED (PRN)
     Route: 048
  10. ATIVAN [Suspect]
     Active Substance: LORAZEPAM
     Indication: PRODUCT USED FOR UNKNOWN INDICATION
     Dosage: PRN
     Route: 048
     Dates: start: 20161030
  11. ZYVOX [Suspect]
     Active Substance: LINEZOLID
     Indication: MASTITIS
     Route: 048
     Dates: start: 20161031, end: 20161116
  12. ZYVOX [Suspect]
     Active Substance: LINEZOLID
     Indication: POST PROCEDURAL INFECTION
  13. PYRIDIUM [Suspect]
     Active Substance: PHENAZOPYRIDINE
     Indication: PRODUCT USED FOR UNKNOWN INDICATION
     Dosage: PRN
     Route: 048
  14. 0.9% SODIUM CHLORIDE INJECTION [Suspect]
     Active Substance: SODIUM CHLORIDE
     Dosage: IVPB, AT A RATE OF 125 ML/HR, DILUENT FOR VANCOMYCIN
     Route: 042
     Dates: start: 20161031
  15. CIPRO [Suspect]
     Active Substance: CIPROFLOXACIN HYDROCHLORIDE
     Indication: URINARY TRACT INFECTION
     Route: 065

REACTIONS (5)
  - Clostridium difficile colitis [Recovering/Resolving]
  - Nausea [Recovering/Resolving]
  - Neuropathy peripheral [Recovering/Resolving]
  - Tongue discolouration [Unknown]
  - Tooth discolouration [Unknown]

NARRATIVE: CASE EVENT DATE: 201611
